FAERS Safety Report 5609815-5 (Version None)
Quarter: 2008Q1

REPORT INFORMATION
  Report Type: 
  Country: None (occurrence: None)
  Receive Date: 20080131
  Receipt Date: 20070803
  Transmission Date: 20080703
  Serious: No
  Sender: FDA-Public Use
  Company Number: US-BAYER-200712505BCC

PATIENT
  Age: 61 Year
  Sex: Female
  Weight: 82 kg

DRUGS (2)
  1. ALEVE COLD AND SINUS [Suspect]
     Indication: SINUS HEADACHE
     Dosage: TOTAL DAILY DOSE: 220 MG  UNIT DOSE: 220 MG
     Route: 048
     Dates: start: 20070802, end: 20070802
  2. ASPIRIN (GENERIC) [Concomitant]

REACTIONS (2)
  - DIZZINESS [None]
  - NAUSEA [None]
